FAERS Safety Report 11227196 (Version 3)
Quarter: 2015Q3

REPORT INFORMATION
  Report Type: Spontaneous
  Country: US (occurrence: None)
  Receive Date: 20150626
  Receipt Date: 20150723
  Transmission Date: 20151125
  Serious: Yes (Death)
  Sender: FDA-Public Use
  Company Number: US-H14001-15-00970

PATIENT
  Age: 89 Year
  Sex: Female

DRUGS (10)
  1. FLONASE [Concomitant]
     Active Substance: FLUTICASONE PROPIONATE
  2. LASIX [Concomitant]
     Active Substance: FUROSEMIDE
  3. INFUMORPH [Suspect]
     Active Substance: MORPHINE SULFATE
     Indication: PAIN
     Route: 037
     Dates: start: 20060104
  4. IMDUR (ISOSORBDE MONONITRATE) [Concomitant]
  5. ALDACTONE [Concomitant]
     Active Substance: SPIRONOLACTONE
  6. ADVAIR (SERETIDE) [Concomitant]
  7. LOPPRESSOR (METOPROLOL TARTRATE) [Concomitant]
  8. COLACE [Concomitant]
     Active Substance: DOCUSATE SODIUM
  9. GELUSIL (GELUSIL (ALUMINUM HYDROXIDE GEL, MAGNESIUM TRISILICATE) [Concomitant]
  10. CELEX (CITALOPRAM HYDROBROMIDE) [Concomitant]

REACTIONS (1)
  - Death [None]

NARRATIVE: CASE EVENT DATE: 20150504
